FAERS Safety Report 9675451 (Version 2)
Quarter: 2015Q2

REPORT INFORMATION
  Report Type: Spontaneous
  Country: US (occurrence: US)
  Receive Date: 20131107
  Receipt Date: 20150522
  Transmission Date: 20150821
  Serious: Yes (Hospitalization, Other)
  Sender: FDA-Public Use
  Company Number: PHHY2013US123265

PATIENT
  Age: 5 Year
  Sex: Male

DRUGS (1)
  1. SERTRALINE [Suspect]
     Active Substance: SERTRALINE HYDROCHLORIDE
     Indication: PRODUCT USED FOR UNKNOWN INDICATION
     Dosage: 25 MG, UNK
     Route: 065

REACTIONS (10)
  - Serotonin syndrome [Unknown]
  - Dyskinesia [Unknown]
  - Psychomotor hyperactivity [Unknown]
  - Intentional product misuse [Unknown]
  - Hyperhidrosis [Unknown]
  - Pupillary light reflex tests abnormal [Unknown]
  - Vomiting [Unknown]
  - Body temperature increased [Unknown]
  - Hallucination, visual [Unknown]
  - Drug level increased [Unknown]
